FAERS Safety Report 9357168 (Version 3)
Quarter: 2013Q3

REPORT INFORMATION
  Report Type: Spontaneous
  Country: SE (occurrence: SE)
  Receive Date: 20130620
  Receipt Date: 20130723
  Transmission Date: 20140515
  Serious: Yes (Other)
  Sender: FDA-Public Use
  Company Number: SE-BAYER-2013-075509

PATIENT
  Age: 41 Year
  Sex: Female

DRUGS (1)
  1. MIRENA [Suspect]
     Dosage: 20 MCG/24HR, CONT
     Route: 015
     Dates: start: 20110607, end: 20130422

REACTIONS (3)
  - Lichen planus [Not Recovered/Not Resolved]
  - Coital bleeding [Not Recovered/Not Resolved]
  - Dyspareunia [Not Recovered/Not Resolved]
